FAERS Safety Report 20751528 (Version 2)
Quarter: 2022Q3

REPORT INFORMATION
  Report Type: Spontaneous
  Country: US (occurrence: US)
  Receive Date: 20220426
  Receipt Date: 20220920
  Transmission Date: 20221027
  Serious: No
  Sender: FDA-Public Use
  Company Number: US-PFIZER INC-202200424923

PATIENT
  Age: 82 Year
  Sex: Female

DRUGS (1)
  1. IBRANCE [Suspect]
     Active Substance: PALBOCICLIB
     Indication: Dedifferentiated liposarcoma
     Dosage: 100 MG

REACTIONS (2)
  - Laboratory test abnormal [Unknown]
  - Off label use [Unknown]
